FAERS Safety Report 11729354 (Version 7)
Quarter: 2023Q2

REPORT INFORMATION
  Report Type: Spontaneous
  Country: FR (occurrence: FR)
  Receive Date: 20151112
  Receipt Date: 20230522
  Transmission Date: 20230722
  Serious: Yes (Disabling, Other)
  Sender: FDA-Public Use
  Company Number: FR-BAYER-2015-459767

PATIENT
  Age: 59 Year
  Sex: Female
  Weight: 60 kg

DRUGS (5)
  1. MOXIFLOXACIN HYDROCHLORIDE [Suspect]
     Active Substance: MOXIFLOXACIN HYDROCHLORIDE
     Indication: Sinusitis bacterial
     Dosage: 1 DF, QD
     Dates: start: 20140727, end: 201407
  2. MOXIFLOXACIN HYDROCHLORIDE [Suspect]
     Active Substance: MOXIFLOXACIN HYDROCHLORIDE
     Indication: Sinusitis bacterial
     Dosage: 1 DF, QD
     Dates: start: 20140724, end: 20150730
  3. PREDNISOLONE SODIUM METAZOATE [Concomitant]
     Active Substance: PREDNISOLONE SODIUM METAZOATE
     Dosage: 20 MG, TID
  4. DENOREX THERAPEUTIC [Concomitant]
     Active Substance: COAL TAR\MENTHOL
     Dosage: 2 DF, TID
  5. COAL TAR;MENTHOL [Concomitant]
     Dosage: 2 DF, TID

REACTIONS (24)
  - Iris disorder [Unknown]
  - Optic nerve injury [Unknown]
  - Vitreous detachment [Unknown]
  - Hyperacusis [Unknown]
  - Accommodation disorder [Unknown]
  - Uveitis [Unknown]
  - Iris vascular disorder [Unknown]
  - Pigmentary glaucoma [Unknown]
  - Pigment dispersion syndrome [None]
  - Suicidal ideation [Unknown]
  - Vision blurred [Unknown]
  - Discomfort [Unknown]
  - Pain [Unknown]
  - Pain in jaw [Unknown]
  - Neck pain [Unknown]
  - Eye pain [Unknown]
  - Depression [Unknown]
  - Photophobia [Unknown]
  - Hypertonia [None]
  - Intraocular pressure decreased [None]
  - Visual impairment [None]
  - Impaired driving ability [None]
  - Anxiety [None]
  - Insomnia [None]

NARRATIVE: CASE EVENT DATE: 20140701
